FAERS Safety Report 16247849 (Version 2)
Quarter: 2019Q2

REPORT INFORMATION
  Report Type: Report from Study
  Country: US (occurrence: US)
  Receive Date: 20190428
  Receipt Date: 20190510
  Transmission Date: 20190711
  Serious: Yes (Hospitalization, Other)
  Sender: FDA-Public Use
  Company Number: PHHY2019US012233

PATIENT
  Age: 39 Year
  Sex: Male
  Weight: 109.3 kg

DRUGS (10)
  1. ZOLPIDEM [Concomitant]
     Active Substance: ZOLPIDEM\ZOLPIDEM TARTRATE
     Dosage: UNK
     Route: 065
     Dates: start: 20190214, end: 20190214
  2. CARBAMAZEPINE. [Concomitant]
     Active Substance: CARBAMAZEPINE
     Indication: MULTIPLE SCLEROSIS
     Dosage: 100 MG, UNK
     Route: 065
     Dates: start: 2018
  3. ALPRAZOLAM. [Concomitant]
     Active Substance: ALPRAZOLAM
     Indication: ANXIETY
     Dosage: 0.5 MG, UNK
     Route: 065
     Dates: start: 2018
  4. AMLODIPINE [Concomitant]
     Active Substance: AMLODIPINE BESYLATE
     Indication: HYPERTENSION
     Dosage: 5 MG, UNK
     Route: 065
  5. AMLODIPINE [Concomitant]
     Active Substance: AMLODIPINE BESYLATE
     Dosage: 10 MG, UNK
     Route: 065
  6. HYDROCHLOROTHIAZIDE. [Concomitant]
     Active Substance: HYDROCHLOROTHIAZIDE
     Dosage: 25 MG, QD
     Route: 065
  7. GILENYA [Suspect]
     Active Substance: FINGOLIMOD HYDROCHLORIDE
     Indication: MULTIPLE SCLEROSIS
     Dosage: 0.5 MG, UNK
     Route: 048
     Dates: start: 20180911
  8. ZOLPIDEM [Concomitant]
     Active Substance: ZOLPIDEM\ZOLPIDEM TARTRATE
     Indication: SLEEP DISORDER
     Dosage: 5 MG, PRN
     Route: 065
     Dates: start: 2018
  9. HYDROCHLOROTHIAZIDE. [Concomitant]
     Active Substance: HYDROCHLOROTHIAZIDE
     Indication: BLOOD PRESSURE MEASUREMENT
     Dosage: 12.5 MG, QD
     Route: 065
  10. ENOXAPARIN [Concomitant]
     Active Substance: ENOXAPARIN
     Indication: THROMBOSIS PROPHYLAXIS
     Dosage: UNK
     Dates: start: 20190214, end: 20190214

REACTIONS (27)
  - Headache [Recovered/Resolved]
  - Tunnel vision [Unknown]
  - Fall [Unknown]
  - Bursitis [Unknown]
  - Anxiety [Unknown]
  - Paraesthesia [Unknown]
  - Pain [Unknown]
  - Multiple sclerosis relapse [Recovered/Resolved]
  - Vision blurred [Recovering/Resolving]
  - Type 1 diabetes mellitus [Not Recovered/Not Resolved]
  - Diabetic retinopathy [Unknown]
  - Post-traumatic headache [Unknown]
  - Dizziness [Unknown]
  - Sensory disturbance [Unknown]
  - Mitral valve incompetence [Unknown]
  - Aortic valve incompetence [Unknown]
  - Depression [Unknown]
  - Aortic dilatation [Unknown]
  - Fatigue [Unknown]
  - Muscle twitching [Recovering/Resolving]
  - Arthralgia [Unknown]
  - Right ventricular systolic pressure increased [Unknown]
  - Headache [Recovered/Resolved]
  - Syncope [Recovered/Resolved]
  - Amnesia [Unknown]
  - Ventricular dysfunction [Unknown]
  - Macular oedema [Unknown]

NARRATIVE: CASE EVENT DATE: 20181004
